FAERS Safety Report 12697328 (Version 1)
Quarter: 2016Q3

REPORT INFORMATION
  Report Type: Spontaneous
  Country: US (occurrence: US)
  Receive Date: 20160830
  Receipt Date: 20160830
  Transmission Date: 20161109
  Serious: No
  Sender: FDA-Public Use
  Company Number: US-JNJFOC-20160613831

PATIENT
  Age: 5 Decade

DRUGS (1)
  1. REMICADE [Suspect]
     Active Substance: INFLIXIMAB
     Indication: RHEUMATOID ARTHRITIS
     Route: 042

REACTIONS (5)
  - Infusion related reaction [Unknown]
  - Blood pressure increased [Unknown]
  - Drug ineffective [Unknown]
  - Chest discomfort [Unknown]
  - Back pain [Unknown]
